FAERS Safety Report 6536016-9 (Version None)
Quarter: 2010Q1

REPORT INFORMATION
  Report Type: 
  Country: None (occurrence: None)
  Receive Date: 20100113
  Receipt Date: 20100109
  Transmission Date: 20100710
  Serious: Yes (Other)
  Sender: FDA-Public Use
  Company Number: CN-ROCHE-678510

PATIENT
  Sex: Female
  Weight: 100 kg

DRUGS (3)
  1. HERCEPTIN [Suspect]
     Indication: BREAST CANCER
     Dosage: ADMINISTRATION FOR 10 TIMES IN TOTAL.
     Route: 041
     Dates: start: 20090101, end: 20090725
  2. HERCEPTIN [Suspect]
     Route: 041
     Dates: start: 20090901, end: 20091101
  3. CHEMOTHERAPY DRUG NOS [Concomitant]
     Indication: BREAST CANCER
     Route: 041

REACTIONS (3)
  - DRUG RESISTANCE [None]
  - METASTASES TO BONE [None]
  - METASTASES TO LYMPH NODES [None]
